FAERS Safety Report 7700266-6 (Version None)
Quarter: 2011Q3

REPORT INFORMATION
  Report Type: 
  Country: None (occurrence: None)
  Receive Date: 20110816
  Receipt Date: 20110727
  Transmission Date: 20111222
  Serious: Yes (Death)
  Sender: FDA-Public Use
  Company Number: JPI-P-016097

PATIENT
  Sex: Male

DRUGS (1)
  1. LUVOX [Suspect]
     Indication: PRODUCT USED FOR UNKNOWN INDICATION
     Dosage: ORAL
     Route: 048
     Dates: start: 20110101

REACTIONS (1)
  - DEATH [None]
